FAERS Safety Report 6817712-2 (Version None)
Quarter: 2010Q3

REPORT INFORMATION
  Report Type: 
  Country: None (occurrence: None)
  Receive Date: 20100706
  Receipt Date: 20100624
  Transmission Date: 20110219
  Serious: Yes (Death, Hospitalization)
  Sender: FDA-Public Use
  Company Number: BR-PFIZER INC-2010075177

PATIENT
  Age: 54 Year
  Sex: Male
  Weight: 73 kg

DRUGS (1)
  1. SUTENT [Suspect]
     Indication: DISEASE RECURRENCE
     Dosage: UNK
     Route: 048
     Dates: start: 20100114, end: 20100501

REACTIONS (6)
  - ABDOMINAL DISCOMFORT [None]
  - DIARRHOEA [None]
  - ERYTHEMA [None]
  - NECROTISING FASCIITIS [None]
  - PERINEAL PAIN [None]
  - SCROTAL OEDEMA [None]
